FAERS Safety Report 21370049 (Version 2)
Quarter: 2022Q3

REPORT INFORMATION
  Report Type: Spontaneous
  Country: US (occurrence: US)
  Receive Date: 20220923
  Receipt Date: 20220923
  Transmission Date: 20221026
  Serious: Yes (Other)
  Sender: FDA-Public Use
  Company Number: US-PFIZER INC-202201180007

PATIENT
  Age: 61 Year
  Sex: Female
  Weight: 106.59 kg

DRUGS (2)
  1. TOVIAZ [Suspect]
     Active Substance: FESOTERODINE FUMARATE
     Dosage: 4 MG
  2. FESOTERODINE [Suspect]
     Active Substance: FESOTERODINE
     Dosage: 4 MG
     Route: 048

REACTIONS (7)
  - Kidney infection [Unknown]
  - Urinary tract infection [Unknown]
  - Pollakiuria [Unknown]
  - Illness [Unknown]
  - Tremor [Unknown]
  - Pulse absent [Unknown]
  - Vision blurred [Unknown]

NARRATIVE: CASE EVENT DATE: 20220912
